FAERS Safety Report 7580114-8 (Version None)
Quarter: 2011Q2

REPORT INFORMATION
  Report Type: 
  Country: None (occurrence: None)
  Receive Date: 20110629
  Receipt Date: 20110621
  Transmission Date: 20111010
  Serious: Yes (Death, Hospitalization)
  Sender: FDA-Public Use
  Company Number: FR-ELI_LILLY_AND_COMPANY-FR201106006398

PATIENT
  Age: 50 Year
  Sex: Female

DRUGS (1)
  1. OLANZAPINE [Suspect]
     Dosage: 300 MG, OTHER
     Route: 030

REACTIONS (3)
  - PULMONARY EMBOLISM [None]
  - MENTAL DISORDER [None]
  - SINUS TACHYCARDIA [None]
